FAERS Safety Report 7717143-7 (Version None)
Quarter: 2011Q3

REPORT INFORMATION
  Report Type: 
  Country: None (occurrence: None)
  Receive Date: 20110826
  Receipt Date: 20110826
  Transmission Date: 20111222
  Serious: No
  Sender: FDA-Public Use
  Company Number: None

PATIENT
  Age: 62 Year
  Sex: Male
  Weight: 81.8 kg

DRUGS (1)
  1. VANCOMYCIN [Suspect]
     Indication: SURGERY
     Dosage: 1000 MG ONCE IV
     Route: 042
     Dates: start: 20110707, end: 20110707

REACTIONS (1)
  - HYPOTENSION [None]
